FAERS Safety Report 6944545-9 (Version None)
Quarter: 2010Q3

REPORT INFORMATION
  Report Type: 
  Country: None (occurrence: None)
  Receive Date: 20100827
  Receipt Date: 20100819
  Transmission Date: 20110219
  Serious: Yes (Death)
  Sender: FDA-Public Use
  Company Number: JP-JNJFOC-20100603739

PATIENT
  Sex: Male
  Weight: 60 kg

DRUGS (12)
  1. RISPERDAL CONSTA [Suspect]
     Indication: SCHIZOPHRENIA
     Route: 030
  2. RISPERDAL [Suspect]
     Indication: SCHIZOPHRENIA
     Route: 048
  3. RISPERDAL [Suspect]
     Route: 048
  4. RISPERDAL [Suspect]
     Route: 048
  5. RISPERDAL [Suspect]
     Route: 048
  6. RISPERDAL [Suspect]
     Route: 048
  7. LEVOTOMIN [Suspect]
     Indication: SCHIZOPHRENIA
     Route: 048
  8. LEVOTOMIN [Suspect]
     Route: 048
  9. AKINETON [Concomitant]
     Route: 048
  10. AKINETON [Concomitant]
     Route: 048
  11. TASMOLIN [Concomitant]
     Indication: EXTRAPYRAMIDAL DISORDER
     Route: 048
  12. TASMOLIN [Concomitant]
     Route: 048

REACTIONS (4)
  - BLOOD CREATINE PHOSPHOKINASE INCREASED [None]
  - EXTRAPYRAMIDAL DISORDER [None]
  - PNEUMONIA [None]
  - PULMONARY OEDEMA [None]
